FAERS Safety Report 7275706-X (Version None)
Quarter: 2011Q1

REPORT INFORMATION
  Report Type: 
  Country: None (occurrence: None)
  Receive Date: 20110204
  Receipt Date: 20110119
  Transmission Date: 20110831
  Serious: Yes (Hospitalization)
  Sender: FDA-Public Use
  Company Number: US-ROCHE-747450

PATIENT
  Sex: Female
  Weight: 49.9 kg

DRUGS (2)
  1. CAPECITABINE [Suspect]
     Route: 048
     Dates: start: 20101108, end: 20101126
  2. BEVACIZUMAB [Suspect]
     Dosage: ROUTE: IVPB
     Route: 042
     Dates: start: 20101108, end: 20101108

REACTIONS (3)
  - DEHYDRATION [None]
  - PALMAR-PLANTAR ERYTHRODYSAESTHESIA SYNDROME [None]
  - DIARRHOEA [None]
